FAERS Safety Report 9143214 (Version 1)
Quarter: 2013Q1

REPORT INFORMATION
  Report Type: Spontaneous
  Country: JP (occurrence: JP)
  Receive Date: 20130306
  Receipt Date: 20130306
  Transmission Date: 20140127
  Serious: Yes (Other)
  Sender: FDA-Public Use
  Company Number: JP-ASTELLAS-2013JP003117

PATIENT
  Age: 49 Year
  Sex: Female

DRUGS (21)
  1. BETANIS [Suspect]
     Indication: HYPERTONIC BLADDER
     Dosage: 50 MG, UNKNOWN/D
     Route: 048
     Dates: start: 201212, end: 20130222
  2. LIPITOR [Concomitant]
     Dosage: UNK
     Route: 048
  3. MERCAZOLE [Concomitant]
     Dosage: UNK
     Route: 065
  4. TIOSTAR [Concomitant]
     Dosage: UNK
     Route: 048
  5. MUCOSTA [Concomitant]
     Dosage: UNK
     Route: 065
  6. LUCKMERON                          /00565901/ [Concomitant]
     Dosage: UNK
     Route: 048
  7. CONCZYME N [Concomitant]
     Dosage: UNK
     Route: 048
  8. GASTROM [Concomitant]
     Dosage: UNK
     Route: 048
  9. ATENERIN [Concomitant]
     Dosage: UNK
     Route: 065
  10. MENITAZINE [Concomitant]
     Dosage: UNK
     Route: 048
  11. TOSPERAL [Concomitant]
     Dosage: UNK
     Route: 048
  12. ADETPHOS [Concomitant]
     Dosage: UNK
     Route: 048
  13. SEPAZON [Concomitant]
     Dosage: UNK
     Route: 048
  14. SOLANAX [Concomitant]
     Dosage: UNK
     Route: 048
  15. LEVOTOMIN                          /00038602/ [Concomitant]
     Dosage: UNK
     Route: 065
  16. EURODIN                            /00425901/ [Concomitant]
     Dosage: UNK
     Route: 048
  17. AMOBAN [Concomitant]
     Dosage: UNK
     Route: 048
  18. LENDORMIN [Concomitant]
     Dosage: UNK
     Route: 048
  19. HALCION [Concomitant]
     Dosage: UNK
     Route: 048
  20. MEILAX [Concomitant]
     Dosage: UNK
     Route: 048
  21. CERCINE [Concomitant]
     Dosage: UNK
     Route: 065

REACTIONS (2)
  - Postrenal failure [Unknown]
  - Urinary retention [Unknown]
